FAERS Safety Report 24698298 (Version 1)
Quarter: 2024Q4

REPORT INFORMATION
  Report Type: Spontaneous
  Country: US (occurrence: US)
  Receive Date: 20241204
  Receipt Date: 20241204
  Transmission Date: 20250115
  Serious: No
  Sender: EMERGENT BIOSOLUTIONS
  Company Number: US-EMERGENT BIOSOLUTIONS-24000201

PATIENT
  Sex: Female

DRUGS (1)
  1. NARCAN [Suspect]
     Active Substance: NALOXONE HYDROCHLORIDE
     Indication: Product used for unknown indication
     Dosage: UNK, 01 DOSE
     Route: 065
     Dates: start: 20241119

REACTIONS (2)
  - Feeling hot [Unknown]
  - Vomiting [Unknown]

NARRATIVE: CASE EVENT DATE: 20241119
